FAERS Safety Report 10289154 (Version 3)
Quarter: 2014Q4

REPORT INFORMATION
  Report Type: Spontaneous
  Country: IT (occurrence: IT)
  Receive Date: 20140710
  Receipt Date: 20141113
  Transmission Date: 20150528
  Serious: Yes (Hospitalization, Other)
  Sender: FDA-Public Use
  Company Number: IT-ROCHE-1431526

PATIENT
  Age: 54 Year
  Sex: Male

DRUGS (2)
  1. XOLAIR [Suspect]
     Active Substance: OMALIZUMAB
     Indication: ASTHMA
     Route: 058
     Dates: start: 20140108, end: 20140108
  2. XOLAIR [Suspect]
     Active Substance: OMALIZUMAB
     Route: 058
     Dates: start: 20140516, end: 20140516

REACTIONS (2)
  - Secretory adenoma of pituitary [Unknown]
  - Hemianopia [Unknown]

NARRATIVE: CASE EVENT DATE: 20140630
